FAERS Safety Report 13492750 (Version 1)
Quarter: 2017Q2

REPORT INFORMATION
  Report Type: Report from Study
  Country: BR (occurrence: BR)
  Receive Date: 20170427
  Receipt Date: 20170427
  Transmission Date: 20170830
  Serious: Yes (Other)
  Sender: FDA-Public Use
  Company Number: BR-ROCHE-1925911

PATIENT
  Age: 65 Year
  Sex: Male
  Weight: 71 kg

DRUGS (7)
  1. AVASTIN [Suspect]
     Active Substance: BEVACIZUMAB
     Indication: COLORECTAL CANCER
     Route: 042
     Dates: start: 20151002, end: 20160411
  2. FOLINIC ACID [Suspect]
     Active Substance: LEUCOVORIN
     Indication: COLORECTAL CANCER
     Route: 065
     Dates: end: 20160411
  3. FLUOROURACIL. [Suspect]
     Active Substance: FLUOROURACIL
     Route: 065
     Dates: end: 20161213
  4. FLUOROURACIL. [Suspect]
     Active Substance: FLUOROURACIL
     Indication: COLORECTAL CANCER
     Route: 065
     Dates: end: 20160411
  5. IRINOTECAN [Suspect]
     Active Substance: IRINOTECAN
     Indication: COLORECTAL CANCER
     Route: 065
     Dates: end: 20161213
  6. FOLINIC ACID [Suspect]
     Active Substance: LEUCOVORIN
     Route: 065
     Dates: end: 20161213
  7. OXALIPLATIN. [Suspect]
     Active Substance: OXALIPLATIN
     Indication: COLORECTAL CANCER
     Route: 065
     Dates: end: 20160411

REACTIONS (2)
  - Disease progression [Unknown]
  - Drug ineffective [Unknown]
